FAERS Safety Report 20201938 (Version 2)
Quarter: 2021Q4

REPORT INFORMATION
  Report Type: Spontaneous
  Country: DE (occurrence: DE)
  Receive Date: 20211217
  Receipt Date: 20211228
  Transmission Date: 20220303
  Serious: Yes (Other)
  Sender: FDA-Public Use
  Company Number: DE-GRUNENTHAL-2021-271476

PATIENT
  Age: 53 Year
  Sex: Female

DRUGS (12)
  1. TRAMADOL [Suspect]
     Active Substance: TRAMADOL
     Indication: Product used for unknown indication
     Dosage: 200 MILLIGRAM, 1/DAY
     Route: 048
     Dates: start: 20210813
  2. TRAMADOL [Suspect]
     Active Substance: TRAMADOL
     Dosage: 50 MILLIGRAM, 1/DAY
     Route: 048
     Dates: start: 20210805
  3. TRAMADOL [Suspect]
     Active Substance: TRAMADOL
     Dosage: 100 MILLIGRAM, 1/DAY
     Route: 048
     Dates: start: 20210806, end: 20210812
  4. PREGABALIN [Suspect]
     Active Substance: PREGABALIN
     Indication: Product used for unknown indication
     Dosage: 150 MILLIGRAM, 1/DAY
     Route: 048
     Dates: start: 20210729
  5. PREGABALIN [Suspect]
     Active Substance: PREGABALIN
     Dosage: 25 MILLIGRAM, 1/DAY
     Route: 048
     Dates: start: 20210628, end: 20210630
  6. RISPERIDONE [Suspect]
     Active Substance: RISPERIDONE
     Indication: Product used for unknown indication
     Dosage: 2 MILLIGRAM, 1/DAY
     Route: 048
     Dates: start: 20210601, end: 20210627
  7. RISPERIDONE [Suspect]
     Active Substance: RISPERIDONE
     Dosage: 3 MILLIGRAM, 1/DAY
     Route: 048
     Dates: start: 20210628
  8. METAMIZOLE [Suspect]
     Active Substance: METAMIZOLE
     Indication: Product used for unknown indication
     Dosage: 5000 MILLIGRAM, 1/DAY
     Route: 048
     Dates: start: 20210714
  9. METAMIZOLE [Suspect]
     Active Substance: METAMIZOLE
     Dosage: 2000 MILLIGRAM, 1/DAY
     Route: 048
     Dates: start: 20210629, end: 20210713
  10. METAMIZOLE [Suspect]
     Active Substance: METAMIZOLE
     Dosage: 1500 MILLIGRAM, 1/DAY
     Route: 048
     Dates: start: 20210628
  11. METOCLOPRAMIDE [Suspect]
     Active Substance: METOCLOPRAMIDE
     Indication: Product used for unknown indication
     Dosage: 30 MILLIGRAM, 1/DAY
     Route: 048
     Dates: start: 20210806, end: 20210829
  12. DEXAMETHASONE [Suspect]
     Active Substance: DEXAMETHASONE
     Indication: Product used for unknown indication
     Dosage: 2 MILLIGRAM, 1/DAY
     Route: 048
     Dates: start: 20210601

REACTIONS (1)
  - Hepatic enzyme increased [Not Recovered/Not Resolved]
